FAERS Safety Report 7791915-5 (Version None)
Quarter: 2011Q4

REPORT INFORMATION
  Report Type: 
  Country: None (occurrence: None)
  Receive Date: 20111003
  Receipt Date: 20110923
  Transmission Date: 20120403
  Serious: Yes (Life-Threatening, Hospitalization)
  Sender: FDA-Public Use
  Company Number: FR-JNJFOC-20110306024

PATIENT
  Sex: Male

DRUGS (1)
  1. RISPERDAL CONSTA [Suspect]
     Indication: SEXUAL DYSFUNCTION
     Route: 030
     Dates: start: 20101205, end: 20110209

REACTIONS (8)
  - DYSTONIA [None]
  - NEUROLEPTIC MALIGNANT SYNDROME [None]
  - DISTURBANCE IN ATTENTION [None]
  - RESPIRATORY DISTRESS [None]
  - OFF LABEL USE [None]
  - DYSKINESIA [None]
  - HYPERTONIA [None]
  - MYOCLONUS [None]
